FAERS Safety Report 21412298 (Version 1)
Quarter: 2022Q4

REPORT INFORMATION
  Report Type: Spontaneous
  Country: US (occurrence: None)
  Receive Date: 20221004
  Receipt Date: 20221004
  Transmission Date: 20230113
  Serious: Yes (Hospitalization)
  Sender: FDA-Public Use
  Company Number: None

PATIENT
  Age: 58 Year
  Sex: Male

DRUGS (1)
  1. CAPECITABINE [Suspect]
     Active Substance: CAPECITABINE
     Indication: Neoplasm malignant
     Dosage: FREQUENCY : DAILY;?500 MG 3 IN THE AM 4 IN THE EVENING ORAL DAILY? ??
     Route: 048
     Dates: start: 20220914

REACTIONS (4)
  - Breast cancer female [None]
  - Gastrooesophageal reflux disease [None]
  - Nausea [None]
  - Vomiting [None]

NARRATIVE: CASE EVENT DATE: 20220928
